FAERS Safety Report 9688882 (Version 1)
Quarter: 2013Q4

REPORT INFORMATION
  Report Type: Spontaneous
  Country: FR (occurrence: None)
  Receive Date: 20131112
  Receipt Date: 20131112
  Transmission Date: 20140711
  Serious: Yes (Other)
  Sender: FDA-Public Use
  Company Number: FR-SEPTODONT-201301596

PATIENT
  Age: 53 Year
  Sex: Female

DRUGS (1)
  1. SCANDICAINE [Suspect]
     Indication: LOCAL ANAESTHESIA
     Dosage: 1 DF TOTAL DENTAL
     Dates: start: 20131003, end: 20131003

REACTIONS (2)
  - Dyspnoea [None]
  - Chest discomfort [None]
